FAERS Safety Report 13565143 (Version 1)
Quarter: 2017Q2

REPORT INFORMATION
  Report Type: Spontaneous
  Country: MT (occurrence: MT)
  Receive Date: 20170519
  Receipt Date: 20170519
  Transmission Date: 20170830
  Serious: Yes (Other)
  Sender: FDA-Public Use
  Company Number: MT-BAYER-2017-092522

PATIENT
  Age: 56 Year
  Sex: Male

DRUGS (1)
  1. GADOVIST [Suspect]
     Active Substance: GADOBUTROL
     Indication: IMAGING PROCEDURE
     Dosage: 0.1 MG/KG, ONCE
     Route: 042
     Dates: start: 20170506, end: 20170506

REACTIONS (3)
  - Paraesthesia oral [Recovered/Resolved]
  - Dysphonia [Recovered/Resolved]
  - Facial paralysis [Recovered/Resolved]

NARRATIVE: CASE EVENT DATE: 20170506
